FAERS Safety Report 23701780 (Version 1)
Quarter: 2024Q2

REPORT INFORMATION
  Report Type: Spontaneous
  Country: CN (occurrence: CN)
  Receive Date: 20240403
  Receipt Date: 20240403
  Transmission Date: 20240716
  Serious: Yes (Other)
  Sender: FDA-Public Use
  Company Number: CN-PFIZER INC-PV202400042466

PATIENT
  Age: 45 Year
  Sex: Male
  Weight: 105 kg

DRUGS (5)
  1. NIRMATRELVIR\RITONAVIR [Suspect]
     Active Substance: NIRMATRELVIR\RITONAVIR
     Indication: COVID-19 pneumonia
     Dosage: 400 MG, 2X/DAY (300 MG NIRMATRELVIR + 100 MG RITONAVIR)
     Route: 048
     Dates: start: 20221222, end: 20221227
  2. METHYLPREDNISOLONE SODIUM SUCCINATE [Suspect]
     Active Substance: METHYLPREDNISOLONE SODIUM SUCCINATE
     Dosage: 40 MG, 1X/DAY QD
     Route: 041
     Dates: start: 20221220, end: 20221223
  3. METHYLPREDNISOLONE SODIUM SUCCINATE [Suspect]
     Active Substance: METHYLPREDNISOLONE SODIUM SUCCINATE
     Dosage: 40 MG, 2X/DAY
     Route: 041
     Dates: start: 20221223, end: 20221226
  4. FENOFIBRATE [Concomitant]
     Active Substance: FENOFIBRATE
     Indication: Blood triglycerides increased
     Dosage: 0.2 G, QD
     Route: 048
     Dates: start: 20221224
  5. RO-0622 [Concomitant]
     Active Substance: RO-0622
     Indication: Antiviral treatment
     Dosage: 5 MG, 1X/DAY QD
     Route: 048

REACTIONS (2)
  - Hypertriglyceridaemia [Recovering/Resolving]
  - Off label use [Unknown]

NARRATIVE: CASE EVENT DATE: 20221222
